FAERS Safety Report 14364499 (Version 1)
Quarter: 2018Q1

REPORT INFORMATION
  Report Type: Spontaneous
  Country: US (occurrence: US)
  Receive Date: 20180108
  Receipt Date: 20180108
  Transmission Date: 20180509
  Serious: Yes (Hospitalization)
  Sender: FDA-Public Use
  Company Number: US-FRESENIUS KABI-FK201800242

PATIENT
  Age: 60 Year
  Sex: Male

DRUGS (3)
  1. BUPIVACAINE (MANUFACTURER UNKNOWN) [Suspect]
     Active Substance: BUPIVACAINE
     Indication: GROIN PAIN
     Route: 037
  2. LOVENOX [Suspect]
     Active Substance: ENOXAPARIN SODIUM
     Indication: DEEP VEIN THROMBOSIS
     Route: 065
  3. MORPHINE (MANUFACTURER UNKNOWN) [Suspect]
     Active Substance: MORPHINE
     Indication: GROIN PAIN
     Route: 037

REACTIONS (5)
  - Subdural haematoma [Unknown]
  - Administration site swelling [Unknown]
  - Administration site erythema [Unknown]
  - Muscular weakness [Not Recovered/Not Resolved]
  - Pain in extremity [Unknown]
